FAERS Safety Report 4383564-6 (Version None)
Quarter: 2004Q2

REPORT INFORMATION
  Report Type: 
  Country: None (occurrence: None)
  Receive Date: 20040618
  Receipt Date: 20040607
  Transmission Date: 20050107
  Serious: Yes (Hospitalization)
  Sender: FDA-Public Use
  Company Number: 2004218424BR

PATIENT
  Age: 73 Year
  Sex: Male

DRUGS (3)
  1. FRADEMICINA(LINCOMYCIN HYDROCHLORIDE) SOLUTION, STERILE [Suspect]
     Indication: INFLUENZA
     Dosage: 600 MG, DAILY, PARENTERAL
     Route: 051
     Dates: start: 20040603, end: 20040605
  2. AMOXICILLIN [Suspect]
     Dosage: ORAL
     Route: 048
     Dates: start: 20040603
  3. AMBROXYL (AMBROXYL) [Suspect]
     Dosage: ORAL
     Route: 048
     Dates: start: 20040603

REACTIONS (1)
  - CONFUSIONAL STATE [None]
